FAERS Safety Report 17426596 (Version 1)
Quarter: 2020Q1

REPORT INFORMATION
  Report Type: Spontaneous
  Country: US (occurrence: US)
  Receive Date: 20200218
  Receipt Date: 20200218
  Transmission Date: 20200409
  Serious: No
  Sender: FDA-Public Use
  Company Number: US-AMGEN-USASP2020025694

PATIENT
  Age: 64 Year
  Sex: Female

DRUGS (1)
  1. REPATHA [Suspect]
     Active Substance: EVOLOCUMAB
     Indication: BLOOD CHOLESTEROL ABNORMAL
     Dosage: 140 MILLIGRAM
     Route: 065
     Dates: start: 202001, end: 202001

REACTIONS (11)
  - Insomnia [Unknown]
  - Peripheral swelling [Unknown]
  - Musculoskeletal pain [Unknown]
  - Myalgia [Unknown]
  - Muscle spasms [Unknown]
  - Fatigue [Unknown]
  - Burning sensation [Unknown]
  - Paraesthesia [Unknown]
  - Dizziness [Unknown]
  - Tremor [Unknown]
  - Neurological symptom [Unknown]

NARRATIVE: CASE EVENT DATE: 202001
